FAERS Safety Report 14806993 (Version 1)
Quarter: 2018Q2

REPORT INFORMATION
  Report Type: Spontaneous
  Country: US (occurrence: US)
  Receive Date: 20180425
  Receipt Date: 20180425
  Transmission Date: 20180711
  Serious: No
  Sender: FDA-Public Use
  Company Number: US-ROCHE-2074867

PATIENT
  Sex: Female

DRUGS (1)
  1. OCREVUS [Suspect]
     Active Substance: OCRELIZUMAB
     Indication: MULTIPLE SCLEROSIS
     Route: 065
     Dates: start: 20180202

REACTIONS (5)
  - Pyrexia [Unknown]
  - Malaise [Unknown]
  - Feeling abnormal [Unknown]
  - Fatigue [Unknown]
  - Swelling face [Unknown]
